FAERS Safety Report 16910526 (Version 1)
Quarter: 2019Q4

REPORT INFORMATION
  Report Type: Spontaneous
  Country: ES (occurrence: ES)
  Receive Date: 20191011
  Receipt Date: 20191011
  Transmission Date: 20200122
  Serious: No
  Sender: FDA-Public Use
  Company Number: ES-JAZZ-2019-ES-010863

PATIENT
  Age: 20 Year

DRUGS (1)
  1. XYREM [Suspect]
     Active Substance: SODIUM OXYBATE
     Indication: NARCOLEPSY
     Dosage: 7.5 G, BID
     Route: 048

REACTIONS (2)
  - Overdose [Unknown]
  - Blood creatine phosphokinase increased [Unknown]
